FAERS Safety Report 7405049-2 (Version None)
Quarter: 2011Q2

REPORT INFORMATION
  Report Type: 
  Country: None (occurrence: None)
  Receive Date: 20110411
  Receipt Date: 20110404
  Transmission Date: 20111010
  Serious: Yes (Hospitalization)
  Sender: FDA-Public Use
  Company Number: FR-SANOFI-AVENTIS-2011SA020267

PATIENT
  Age: 65 Year
  Sex: Female

DRUGS (4)
  1. CEFTRIAXONE [Suspect]
     Indication: PNEUMONIA LEGIONELLA
     Route: 042
     Dates: start: 20100112, end: 20100113
  2. RIFADIN [Suspect]
     Indication: PNEUMONIA LEGIONELLA
     Dosage: DOSE:2 UNIT(S)
     Route: 048
     Dates: start: 20100111, end: 20100112
  3. TAVANIC [Suspect]
  4. TAVANIC [Suspect]
     Indication: PNEUMONIA LEGIONELLA
     Route: 048
     Dates: start: 20100111, end: 20100126

REACTIONS (2)
  - PYREXIA [None]
  - PSEUDOMEMBRANOUS COLITIS [None]
